FAERS Safety Report 15568771 (Version 1)
Quarter: 2018Q4

REPORT INFORMATION
  Report Type: Spontaneous
  Country: FR (occurrence: FR)
  Receive Date: 20181031
  Receipt Date: 20181031
  Transmission Date: 20190205
  Serious: Yes (Hospitalization)
  Sender: FDA-Public Use
  Company Number: FR-TEVA-2018-FR-969578

PATIENT
  Age: 69 Year
  Sex: Male
  Weight: 106 kg

DRUGS (16)
  1. PANOTILE, SOLUTION POUR INSTILLATION AURICULAIRE [Concomitant]
     Route: 065
  2. METFORMINE [Concomitant]
     Active Substance: METFORMIN HYDROCHLORIDE
  3. IXPRIM [Concomitant]
     Active Substance: ACETAMINOPHEN\TRAMADOL HYDROCHLORIDE
  4. DUTASTERIDE. [Suspect]
     Active Substance: DUTASTERIDE
     Indication: BENIGN PROSTATIC HYPERPLASIA
     Dosage: 1 DOSAGE FORMS DAILY;
     Route: 048
  5. VALSARTAN. [Concomitant]
     Active Substance: VALSARTAN
  6. NOVOMIX [Concomitant]
     Active Substance: INSULIN ASPART
  7. AMLODIPINE [Concomitant]
     Active Substance: AMLODIPINE BESYLATE
  8. GALVUS 50 MG, COMPRIM? [Suspect]
     Active Substance: VILDAGLIPTIN
     Indication: TYPE 2 DIABETES MELLITUS
     Dosage: 2 DOSAGE FORMS DAILY;
     Route: 048
     Dates: end: 20180925
  9. ACIDE CROMOGLYCIQUE [Concomitant]
  10. ALPROSTADIL. [Concomitant]
     Active Substance: ALPROSTADIL
  11. RAMIPRIL. [Concomitant]
     Active Substance: RAMIPRIL
  12. ACIDE ACETYLSALICYLIQUE [Concomitant]
     Active Substance: ASPIRIN
  13. BUDESONIDE. [Concomitant]
     Active Substance: BUDESONIDE
  14. PRAVASTATINE SODIQUE [Concomitant]
     Active Substance: PRAVASTATIN SODIUM
  15. OMEPRAZOLE. [Concomitant]
     Active Substance: OMEPRAZOLE
  16. REPAGLINIDE. [Concomitant]
     Active Substance: REPAGLINIDE

REACTIONS (1)
  - Pemphigoid [Recovering/Resolving]

NARRATIVE: CASE EVENT DATE: 201807
